FAERS Safety Report 9937154 (Version 1)
Quarter: 2014Q1

REPORT INFORMATION
  Report Type: Spontaneous
  Country: JP (occurrence: JP)
  Receive Date: 20140301
  Receipt Date: 20140301
  Transmission Date: 20141002
  Serious: Yes (Death, Other)
  Sender: FDA-Public Use
  Company Number: PHHY2014JP020954

PATIENT
  Age: 71 Year
  Sex: Male

DRUGS (2)
  1. CISPLATIN [Suspect]
     Indication: SMALL CELL CARCINOMA
     Dosage: 80 MG/M2, OVER 2 HOURS
     Route: 062
  2. IRINOTECAN [Suspect]
     Indication: SMALL CELL CARCINOMA
     Dosage: 60 MG/M2, UNK
     Route: 062

REACTIONS (6)
  - Pneumonia aspiration [Fatal]
  - Oesophageal ulcer haemorrhage [Fatal]
  - Gastric cancer recurrent [Unknown]
  - Febrile neutropenia [Unknown]
  - Nausea [Unknown]
  - Diarrhoea [Unknown]
